FAERS Safety Report 9663291 (Version 2)
Quarter: 2013Q4

REPORT INFORMATION
  Report Type: Report from Study
  Country: US (occurrence: US)
  Receive Date: 20131101
  Receipt Date: 20131226
  Transmission Date: 20140711
  Serious: Yes (Hospitalization)
  Sender: FDA-Public Use
  Company Number: US-ROCHE-1295109

PATIENT
  Age: 13 Year
  Sex: Male
  Weight: 37.2 kg

DRUGS (3)
  1. BEVACIZUMAB [Suspect]
     Indication: RHABDOMYOSARCOMA
     Dosage: ON 30/MAY/2013, PATIENT RECEIVED LAST DOSE OF BEVACIZUMAB
     Route: 042
     Dates: start: 20120927
  2. VINORELBINE [Suspect]
     Indication: RHABDOMYOSARCOMA
     Dosage: ON 06/JUN/2013, PATIENT RECEIVED LAST DOSE OF VINORELBINE
     Route: 042
     Dates: start: 20120927
  3. CYCLOPHOSPHAMIDE [Suspect]
     Indication: RHABDOMYOSARCOMA
     Dosage: ON 30/MAY/2013, PATIENT RECEIVED LAST DOSE OF CYCLOPHOSPHAMIDE
     Route: 042
     Dates: start: 20120927

REACTIONS (1)
  - Leukaemia [Not Recovered/Not Resolved]
